FAERS Safety Report 4757847-1 (Version None)
Quarter: 2005Q3

REPORT INFORMATION
  Report Type: 
  Country: None (occurrence: None)
  Receive Date: 20050831
  Receipt Date: 20050621
  Transmission Date: 20060218
  Serious: Yes (Hospitalization, Other)
  Sender: FDA-Public Use
  Company Number: GBWYE763121JUN05

PATIENT
  Sex: Female

DRUGS (9)
  1. ENBREL [Suspect]
     Indication: RHEUMATOID ARTHRITIS
     Route: 058
     Dates: start: 20041121, end: 20050621
  2. INFLIXIMAB [Suspect]
  3. PREDNISOLONE [Concomitant]
     Dosage: 10MG FREQUENCY UNSPECIFIED
     Dates: start: 20041001
  4. CELEBREX [Concomitant]
  5. ACTONEL [Concomitant]
  6. METHOTREXATE [Concomitant]
  7. SERTRALINE HYDROCHLORIDE [Concomitant]
  8. FOLIC ACID [Concomitant]
  9. METOCLOPRAMIDE [Concomitant]

REACTIONS (1)
  - BLADDER CANCER [None]
